FAERS Safety Report 9771349 (Version 2)
Quarter: 2014Q1

REPORT INFORMATION
  Report Type: Report from Study
  Country: US (occurrence: US)
  Receive Date: 20131218
  Receipt Date: 20140106
  Transmission Date: 20141002
  Serious: Yes (Death)
  Sender: FDA-Public Use
  Company Number: PHEH2013US025936

PATIENT
  Sex: Male

DRUGS (1)
  1. TOBI [Suspect]
     Indication: ILL-DEFINED DISORDER
     Dosage: 300 MG, TID FOR 3 DAYS EVERY OTHER WEEK
     Route: 055
     Dates: start: 20130104

REACTIONS (1)
  - Death [Fatal]
